FAERS Safety Report 13738275 (Version 2)
Quarter: 2018Q1

REPORT INFORMATION
  Report Type: Spontaneous
  Country: GB (occurrence: GB)
  Receive Date: 20170710
  Receipt Date: 20180302
  Transmission Date: 20180508
  Serious: Yes (Disabling)
  Sender: FDA-Public Use
  Company Number: GB-009507513-1707GBR000648

PATIENT
  Age: 68 Year
  Sex: Female
  Weight: 40 kg

DRUGS (8)
  1. ADCAL-D3 [Concomitant]
     Active Substance: CALCIUM CARBONATE\CHOLECALCIFEROL
  2. LANZOPRAZOL [Concomitant]
     Active Substance: LANSOPRAZOLE
  3. PROPRANOLOL HYDROCHLORIDE. [Concomitant]
     Active Substance: PROPRANOLOL HYDROCHLORIDE
  4. DICLOFENAC [Concomitant]
     Active Substance: DICLOFENAC
  5. ALENDRONATE SODIUM. [Suspect]
     Active Substance: ALENDRONATE SODIUM
     Indication: OSTEOPOROSIS PROPHYLAXIS
     Dosage: 70 MG, QW
     Route: 048
     Dates: start: 20110221, end: 20170623
  6. ASPIRIN. [Concomitant]
     Active Substance: ASPIRIN
  7. RANITIDINE. [Concomitant]
     Active Substance: RANITIDINE
  8. SIMVASTATIN. [Concomitant]
     Active Substance: SIMVASTATIN

REACTIONS (5)
  - Osteonecrosis of external auditory canal [Not Recovered/Not Resolved]
  - Ear infection [Unknown]
  - Deafness [Unknown]
  - Tympanic membrane perforation [Unknown]
  - Otorrhoea [Unknown]

NARRATIVE: CASE EVENT DATE: 20160101
